FAERS Safety Report 8560150 (Version 2)
Quarter: 2012Q4

REPORT INFORMATION
  Report Type: 
  Country: US (occurrence: US)
  Receive Date: 20120514
  Receipt Date: 20120918
  Transmission Date: 20130627
  Serious: No
  Sender: FDA-Public Use
  Company Number: US-BAYER-2012-045228

PATIENT
  Age: 22 Year
  Sex: Female

DRUGS (1)
  1. MIRENA [Suspect]
     Indication: CONTRACEPTION
     Dosage: 20 mcg/24hr, CONT
     Route: 015
     Dates: start: 20120215, end: 20120910

REACTIONS (10)
  - Device expulsion [Recovered/Resolved]
  - Dizziness [None]
  - Nausea [None]
  - Dyspepsia [None]
  - Abdominal pain [None]
  - Pollakiuria [None]
  - Hiccups [None]
  - Fatigue [None]
  - Apathy [None]
  - Feeling abnormal [None]
